FAERS Safety Report 7023321-5 (Version None)
Quarter: 2010Q3

REPORT INFORMATION
  Report Type: 
  Country: None (occurrence: None)
  Receive Date: 20100916
  Receipt Date: 20100622
  Transmission Date: 20110219
  Serious: No
  Sender: FDA-Public Use
  Company Number: DKLU1063181

PATIENT
  Age: 15 Month
  Sex: Male

DRUGS (11)
  1. SABRIL [Suspect]
     Indication: INFANTILE SPASMS
     Dosage: 400 MG MILLIGRAM(S), 2 IN 1 D, ORAL
     Route: 048
     Dates: start: 20100429
  2. CLONAZEPAM [Concomitant]
  3. INTRAVENOUS SODIUM DIURIL (DIURIL) (CHLOROTHIAZIDE SODIUM) [Concomitant]
  4. METOCLOPRAMID (METOCLOPRAMIDE) [Concomitant]
  5. PEPCID [Concomitant]
  6. POLYVITAMIN (VIGRAN) [Concomitant]
  7. POTASSIUM (POTASSIUM) [Concomitant]
  8. PULMICORT [Concomitant]
  9. SODIUM CHLORIDE 0.9% [Concomitant]
  10. SPIRONOLACTONE [Concomitant]
  11. XOPENEX [Concomitant]

REACTIONS (1)
  - FEEDING DISORDER [None]
